FAERS Safety Report 21424321 (Version 1)
Quarter: 2022Q4

REPORT INFORMATION
  Report Type: Report from Study
  Country: FR (occurrence: FR)
  Receive Date: 20221007
  Receipt Date: 20221007
  Transmission Date: 20230113
  Serious: Yes (Other)
  Sender: FDA-Public Use
  Company Number: FR-JNJFOC-20220456944

PATIENT
  Age: 69 Year
  Sex: Male
  Weight: 62 kg

DRUGS (5)
  1. IBRUTINIB [Suspect]
     Active Substance: IBRUTINIB
     Indication: Chronic lymphocytic leukaemia
     Dosage: MOST RECENT DATE ADMINISTERED ON 29/NOV/2021
     Route: 048
     Dates: start: 20201214
  2. DARATUMUMAB [Suspect]
     Active Substance: DARATUMUMAB
     Indication: Chronic lymphocytic leukaemia
     Dosage: LAST DOSE: 15-NOV-2021
     Dates: start: 20210111
  3. BACTRIM [Concomitant]
     Active Substance: SULFAMETHOXAZOLE\TRIMETHOPRIM
  4. VALACYCLOVIR HYDROCHLORIDE [Concomitant]
     Active Substance: VALACYCLOVIR HYDROCHLORIDE
  5. ALLOPURINOL [Concomitant]
     Active Substance: ALLOPURINOL

REACTIONS (2)
  - Carcinoma in situ [Recovered/Resolved]
  - Basal cell carcinoma [Recovered/Resolved]

NARRATIVE: CASE EVENT DATE: 20211129
